FAERS Safety Report 8401547-3 (Version None)
Quarter: 2012Q2

REPORT INFORMATION
  Report Type: 
  Country: None (occurrence: None)
  Receive Date: 20120601
  Receipt Date: 20120522
  Transmission Date: 20120825
  Serious: Yes (Congenital Anomaly, Other)
  Sender: FDA-Public Use
  Company Number: GXKR2006ES03782

PATIENT
  Age: 1 Day
  Sex: Male
  Weight: 2.12 kg

DRUGS (4)
  1. VALPROIC ACID [Suspect]
     Route: 064
  2. GAMMAGLOBULIN ANTI-D [Concomitant]
     Route: 064
  3. PERPHENAZINE [Concomitant]
  4. INSULIN [Concomitant]
     Route: 064

REACTIONS (23)
  - CARDIAC FAILURE [None]
  - BRADYCARDIA [None]
  - CEREBRAL ATROPHY [None]
  - PREMATURE BABY [None]
  - HYPOTHYROIDISM [None]
  - GINGIVAL HYPERPLASIA [None]
  - NOSE DEFORMITY [None]
  - HYPERREFLEXIA [None]
  - CRYPTORCHISM [None]
  - DYSMORPHISM [None]
  - MATERNAL EXPOSURE TIMING UNSPECIFIED [None]
  - HAEMATOMA [None]
  - HYPOVENTILATION [None]
  - HYPERTELORISM OF ORBIT [None]
  - EAR MALFORMATION [None]
  - TREMOR [None]
  - AGITATION NEONATAL [None]
  - HYPERTONIA [None]
  - PETECHIAE [None]
  - CYANOSIS [None]
  - LUNG INFILTRATION [None]
  - RESPIRATORY DISTRESS [None]
  - APNOEA [None]
